FAERS Safety Report 5768210-9 (Version None)
Quarter: 2008Q2

REPORT INFORMATION
  Report Type: 
  Country: None (occurrence: None)
  Receive Date: 20080612
  Receipt Date: 20080603
  Transmission Date: 20081010
  Serious: Yes (Other)
  Sender: FDA-Public Use
  Company Number: GR-MERCK-0806GRC00002

PATIENT
  Age: 60 Year
  Sex: Female

DRUGS (6)
  1. SINGULAIR [Suspect]
     Indication: COUGH
     Route: 048
     Dates: start: 20080401, end: 20080401
  2. SINGULAIR [Suspect]
     Indication: PHARYNGOLARYNGEAL DISCOMFORT
     Route: 048
     Dates: start: 20080401, end: 20080401
  3. LEVOCETIRIZINE [Suspect]
     Indication: COUGH
     Route: 048
     Dates: start: 20080401, end: 20080401
  4. LEVOCETIRIZINE [Suspect]
     Indication: PHARYNGOLARYNGEAL DISCOMFORT
     Route: 048
     Dates: start: 20080401, end: 20080401
  5. PREDNISOLONE [Suspect]
     Indication: COUGH
     Route: 048
     Dates: start: 20080401, end: 20080401
  6. PREDNISOLONE [Suspect]
     Indication: PHARYNGOLARYNGEAL DISCOMFORT
     Route: 048
     Dates: start: 20080401, end: 20080401

REACTIONS (4)
  - ANGIOEDEMA [None]
  - DYSPHONIA [None]
  - DYSPNOEA [None]
  - PYREXIA [None]
